FAERS Safety Report 18018023 (Version 1)
Quarter: 2020Q3

REPORT INFORMATION
  Report Type: Other
  Country: FR (occurrence: FR)
  Receive Date: 20200714
  Receipt Date: 20200714
  Transmission Date: 20201103
  Serious: Yes (Death)
  Sender: FDA-Public Use
  Company Number: FR-CADILA HEALTHCARE LIMITED-FR-ZYDUS-050086

PATIENT

DRUGS (7)
  1. INDAPAMIDE. [Interacting]
     Active Substance: INDAPAMIDE
     Indication: HYPERTENSION
     Dosage: 2.5 MILLIGRAM, QD
     Route: 048
  2. CISPLATINE [Interacting]
     Active Substance: CISPLATIN
     Indication: OESOPHAGEAL CARCINOMA
     Dosage: 76 MILLIGRAM (CYCLICAL)
     Route: 041
     Dates: start: 20200309, end: 20200309
  3. AUGMENTINE [AMOXICILLIN TRIHYDRATE;CLAVULANATE POTASSIUM] [Interacting]
     Active Substance: AMOXICILLIN\CLAVULANATE POTASSIUM
     Indication: ANTIBIOTIC THERAPY
     Dosage: 3 GRAM, QD
     Route: 042
     Dates: start: 20200303, end: 20200310
  4. CANDESARTAN. [Suspect]
     Active Substance: CANDESARTAN
     Indication: HYPERTENSION
     Dosage: 8 MILLIGRAM, QD
     Route: 048
     Dates: start: 20200310, end: 20200314
  5. FLUOROURACILE [Interacting]
     Active Substance: FLUOROURACIL
     Indication: OESOPHAGEAL CARCINOMA
     Dosage: 2650 MILLIGRAM (CYCLICAL)
     Route: 041
     Dates: start: 20200309, end: 20200309
  6. DOCETAXEL. [Interacting]
     Active Substance: DOCETAXEL
     Indication: OESOPHAGEAL CARCINOMA
     Dosage: 76 MILLIGRAM (CYCLICAL)
     Route: 041
     Dates: start: 20200309, end: 20200309
  7. EXFORGE [Interacting]
     Active Substance: AMLODIPINE BESYLATE\VALSARTAN
     Indication: HYPERTENSION
     Dosage: 1 DOSAGE FORM, QD
     Route: 048

REACTIONS (4)
  - Gastrointestinal ischaemia [Fatal]
  - Hypovolaemic shock [Fatal]
  - Diarrhoea [Fatal]
  - Hepatic ischaemia [Fatal]

NARRATIVE: CASE EVENT DATE: 202003
